FAERS Safety Report 20391327 (Version 1)
Quarter: 2022Q1

REPORT INFORMATION
  Report Type: Spontaneous
  Country: US (occurrence: None)
  Receive Date: 20220127
  Receipt Date: 20220127
  Transmission Date: 20220423
  Serious: Yes (Hospitalization)
  Sender: FDA-Public Use
  Company Number: None

PATIENT
  Age: 12 Year
  Sex: Male
  Weight: 28.4 kg

DRUGS (22)
  1. REMDESIVIR [Suspect]
     Active Substance: REMDESIVIR
     Indication: COVID-19
     Dosage: FREQUENCY : DAILY;?
     Route: 042
     Dates: start: 20220107, end: 20220112
  2. CEFTRIAXONE [Concomitant]
     Active Substance: CEFTRIAXONE
     Dates: start: 20220107, end: 20220107
  3. UNASYN [Concomitant]
     Active Substance: AMPICILLIN SODIUM\SULBACTAM SODIUM
     Dates: start: 20220107, end: 20220112
  4. UNASYN [Concomitant]
     Active Substance: AMPICILLIN SODIUM\SULBACTAM SODIUM
     Dates: start: 20220126, end: 20220127
  5. Epidolex [Concomitant]
     Dates: start: 20220107, end: 20220112
  6. EPIDIOLEX [Concomitant]
     Active Substance: CANNABIDIOL
     Dates: start: 20220126, end: 20220127
  7. FELBAMATE [Concomitant]
     Active Substance: FELBAMATE
     Dates: start: 20220107, end: 20220112
  8. FELBAMATE [Concomitant]
     Active Substance: FELBAMATE
     Dates: start: 20220126, end: 20220126
  9. ACETAMINOPHEN [Concomitant]
     Active Substance: ACETAMINOPHEN
     Dates: start: 20220107, end: 20220112
  10. ACETAMINOPHEN [Concomitant]
     Active Substance: ACETAMINOPHEN
     Dates: start: 20220126, end: 20220126
  11. ENOXAPARIN [Concomitant]
     Active Substance: ENOXAPARIN
     Dates: start: 20220107, end: 20220112
  12. GLYCOPYRROLATE [Concomitant]
     Active Substance: GLYCOPYRROLATE
     Dates: start: 20220107, end: 20220112
  13. OMEPRAZOLE [Concomitant]
     Active Substance: OMEPRAZOLE
     Dates: start: 20220107, end: 20220112
  14. OMEPRAZOLE [Concomitant]
     Active Substance: OMEPRAZOLE
     Dates: start: 20220126, end: 20220127
  15. ZONEGRAN [Concomitant]
     Active Substance: ZONISAMIDE
     Dates: start: 20220107, end: 20220112
  16. ZONEGRAN [Concomitant]
     Active Substance: ZONISAMIDE
     Dates: start: 20220126, end: 20220127
  17. MIRALAX [Concomitant]
     Active Substance: POLYETHYLENE GLYCOL 3350
     Dates: start: 20220107, end: 20220112
  18. BUDESONIDE [Concomitant]
     Active Substance: BUDESONIDE
     Dates: start: 20220107, end: 20220112
  19. BUDESONIDE [Concomitant]
     Active Substance: BUDESONIDE
     Dates: start: 20220126, end: 20220127
  20. CHOLECALCIFEROL [Concomitant]
     Active Substance: CHOLECALCIFEROL
     Dates: start: 20220107, end: 20220112
  21. CHOLECALCIFEROL [Concomitant]
     Active Substance: CHOLECALCIFEROL
     Dates: start: 20220126, end: 20220127
  22. Mucomyst 10% [Concomitant]
     Dates: start: 20220110, end: 20220112

REACTIONS (3)
  - Upper respiratory tract infection [None]
  - Cough [None]
  - Nasal congestion [None]

NARRATIVE: CASE EVENT DATE: 20220126
